FAERS Safety Report 5292513-8 (Version None)
Quarter: 2007Q2

REPORT INFORMATION
  Report Type: 
  Country: None (occurrence: None)
  Receive Date: 20070410
  Receipt Date: 20070329
  Transmission Date: 20071010
  Serious: Yes (Death, Other)
  Sender: FDA-Public Use
  Company Number: PH-PFIZER INC-2007025885

PATIENT
  Age: 82 Year
  Sex: Male

DRUGS (3)
  1. UNASYN [Suspect]
     Indication: IMPAIRED HEALING
     Route: 042
     Dates: start: 20070328, end: 20070328
  2. CLINDAMYCIN [Concomitant]
  3. CIPROFLOXACIN [Concomitant]

REACTIONS (3)
  - ANAPHYLACTIC REACTION [None]
  - ARRHYTHMIA [None]
  - MYOCARDIAL INFARCTION [None]
